FAERS Safety Report 4963478-0 (Version None)
Quarter: 2006Q1

REPORT INFORMATION
  Report Type: 
  Country: None (occurrence: None)
  Receive Date: 20060329
  Receipt Date: 20060213
  Transmission Date: 20060701
  Serious: Yes (Hospitalization, Other)
  Sender: FDA-Public Use
  Company Number: 2006BH000698

PATIENT
  Age: 52 Year
  Sex: Female

DRUGS (2)
  1. IMMUNE GLOBULIN INTRAVENOUS (HUMAN) [Suspect]
     Indication: PETECHIAE
     Dosage: 70 GM; ONCE; IV
     Route: 042
     Dates: start: 19981101, end: 19981101
  2. PREDNISONE TAB [Concomitant]

REACTIONS (11)
  - BILIRUBIN CONJUGATED INCREASED [None]
  - BLOOD BILIRUBIN INCREASED [None]
  - BLOOD LACTATE DEHYDROGENASE INCREASED [None]
  - COOMBS TEST POSITIVE [None]
  - DEEP VEIN THROMBOSIS [None]
  - HYPOAESTHESIA [None]
  - INFUSION SITE OEDEMA [None]
  - INFUSION SITE PAIN [None]
  - PARALYSIS [None]
  - SUBCLAVIAN VEIN THROMBOSIS [None]
  - VENOUS STENOSIS [None]
